FAERS Safety Report 23603999 (Version 2)
Quarter: 2024Q1

REPORT INFORMATION
  Report Type: Spontaneous
  Country: US (occurrence: US)
  Receive Date: 20240307
  Receipt Date: 20240328
  Transmission Date: 20240409
  Serious: No
  Sender: FDA-Public Use
  Company Number: US-BIOVITRUM-2024-US-001266

PATIENT
  Sex: Female
  Weight: 6.22 kg

DRUGS (3)
  1. SYNAGIS [Suspect]
     Active Substance: PALIVIZUMAB
     Indication: Antiviral prophylaxis
     Dosage: 28 DAYS?INJECT 15 MG/KG INTRAMUSCULARLY EVERY 28 DAYS (DOSE BASED ON PATIENT^S CURRENT WEIGHT)
     Route: 030
  2. MYLICON INFANTS GAS RELIEF [Concomitant]
     Indication: Product used for unknown indication
  3. POLY-VI-SOL/IRON [Concomitant]
     Indication: Product used for unknown indication

REACTIONS (1)
  - Nausea [Unknown]
